FAERS Safety Report 12539670 (Version 2)
Quarter: 2016Q3

REPORT INFORMATION
  Report Type: Spontaneous
  Country: IN (occurrence: IN)
  Receive Date: 20160708
  Receipt Date: 20160708
  Transmission Date: 20161109
  Serious: Yes (Other)
  Sender: FDA-Public Use
  Company Number: IN-CIPLA-2014IN00066

PATIENT

DRUGS (2)
  1. AMLODIPINE [Suspect]
     Active Substance: AMLODIPINE BESYLATE
     Indication: HYPERTENSION
     Dosage: 10 MG, QD
     Route: 048
  2. AMLODIPINE [Suspect]
     Active Substance: AMLODIPINE BESYLATE
     Dosage: 50 MG, QD
     Route: 048

REACTIONS (7)
  - Gingival hypertrophy [Recovered/Resolved]
  - Angina pectoris [Unknown]
  - Gingivitis [Recovering/Resolving]
  - Hypercholesterolaemia [Recovering/Resolving]
  - Bone loss [Unknown]
  - Tooth deposit [Unknown]
  - Oropharyngeal plaque [Unknown]
